FAERS Safety Report 7408239-8 (Version None)
Quarter: 2011Q2

REPORT INFORMATION
  Report Type: 
  Country: None (occurrence: None)
  Receive Date: 20110412
  Receipt Date: 20110202
  Transmission Date: 20111010
  Serious: No
  Sender: FDA-Public Use
  Company Number: A0911437A

PATIENT
  Age: 85 Year
  Sex: Male

DRUGS (2)
  1. JALYN [Suspect]
     Indication: BENIGN PROSTATIC HYPERPLASIA
     Dosage: 1CAP PER DAY
     Route: 048
     Dates: start: 20110131
  2. HEART MEDICATION [Concomitant]

REACTIONS (1)
  - INSOMNIA [None]
